FAERS Safety Report 19442313 (Version 1)
Quarter: 2021Q2

REPORT INFORMATION
  Report Type: Spontaneous
  Country: US (occurrence: US)
  Receive Date: 20210618
  Receipt Date: 20210618
  Transmission Date: 20210717
  Serious: No
  Sender: FDA-Public Use
  Company Number: None

PATIENT
  Age: 31 Year
  Sex: Female
  Weight: 96.16 kg

DRUGS (1)
  1. MIRENA [Suspect]
     Active Substance: LEVONORGESTREL
     Dates: start: 20200811, end: 20210615

REACTIONS (3)
  - Pregnancy with contraceptive device [None]
  - Exposure during pregnancy [None]
  - Ectopic pregnancy [None]

NARRATIVE: CASE EVENT DATE: 20210615
